FAERS Safety Report 5055923-X (Version None)
Quarter: 2006Q3

REPORT INFORMATION
  Report Type: 
  Country: None (occurrence: None)
  Receive Date: 20060720
  Receipt Date: 20060710
  Transmission Date: 20061208
  Serious: Yes (Other)
  Sender: FDA-Public Use
  Company Number: CA-ABBOTT-06P-028-0337899-00

PATIENT
  Age: 40 Year
  Sex: Male

DRUGS (1)
  1. BIAXIN XL [Suspect]
     Indication: RESPIRATORY TRACT INFECTION
     Route: 048
     Dates: start: 20060702

REACTIONS (1)
  - DYSURIA [None]
